FAERS Safety Report 13487078 (Version 1)
Quarter: 2017Q2

REPORT INFORMATION
  Report Type: Spontaneous
  Country: AR (occurrence: AR)
  Receive Date: 20170426
  Receipt Date: 20170426
  Transmission Date: 20170830
  Serious: Yes (Other)
  Sender: FDA-Public Use
  Company Number: PHHY2015AR018880

PATIENT
  Age: 25 Year
  Sex: Female

DRUGS (3)
  1. TRILEPTAL [Suspect]
     Active Substance: OXCARBAZEPINE
     Dosage: 300 MG, UNK
     Route: 065
  2. TRILEPTAL [Suspect]
     Active Substance: OXCARBAZEPINE
     Indication: EPILEPSY
     Dosage: 300 OT, QID
     Route: 065
     Dates: start: 20020828
  3. TRILEPTAL [Suspect]
     Active Substance: OXCARBAZEPINE
     Dosage: 300 MG, QD
     Route: 065
     Dates: start: 2013, end: 201505

REACTIONS (8)
  - Seizure [Recovering/Resolving]
  - Hormone level abnormal [Recovered/Resolved]
  - Maternal exposure during pregnancy [Unknown]
  - Pruritus [Recovering/Resolving]
  - Tooth loss [Not Recovered/Not Resolved]
  - Stress [Recovered/Resolved]
  - Uterine contractions during pregnancy [Recovered/Resolved]
  - Feeling of despair [Recovering/Resolving]

NARRATIVE: CASE EVENT DATE: 20120903
